FAERS Safety Report 9341058 (Version 2)
Quarter: 2013Q2

REPORT INFORMATION
  Report Type: Spontaneous
  Country: JP (occurrence: JP)
  Receive Date: 20130610
  Receipt Date: 20130614
  Transmission Date: 20140414
  Serious: Yes (Hospitalization, Other)
  Sender: FDA-Public Use
  Company Number: JP-ASTRAZENECA-2013SE40997

PATIENT
  Sex: Female

DRUGS (4)
  1. SEROQUEL [Suspect]
     Route: 048
  2. SEROQUEL [Suspect]
     Route: 048
  3. WARFARIN [Concomitant]
     Route: 048
  4. SUNRYTHM [Concomitant]

REACTIONS (3)
  - Blood pressure fluctuation [Recovering/Resolving]
  - Depressed level of consciousness [Recovering/Resolving]
  - Dehydration [Unknown]
